FAERS Safety Report 23774035 (Version 2)
Quarter: 2024Q2

REPORT INFORMATION
  Report Type: Spontaneous
  Country: US (occurrence: None)
  Receive Date: 20240423
  Receipt Date: 20240528
  Transmission Date: 20240716
  Serious: Yes (Life-Threatening, Hospitalization, Other)
  Sender: FDA-Public Use
  Company Number: 2024A096003

PATIENT
  Age: 54 Year
  Sex: Male
  Weight: 167.7 kg

DRUGS (26)
  1. METOPROLOL [Suspect]
     Active Substance: METOPROLOL
  2. OMEPRAZOLE [Suspect]
     Active Substance: DONEPEZIL HYDROCHLORIDE\OMEPRAZOLE\OMEPRAZOLE MAGNESIUM
     Route: 048
     Dates: start: 20200506
  3. CABAZITAXEL [Suspect]
     Active Substance: CABAZITAXEL
     Indication: Prostate cancer
     Route: 042
     Dates: start: 20240103
  4. CABAZITAXEL [Suspect]
     Active Substance: CABAZITAXEL
     Indication: Prostate cancer
     Route: 042
     Dates: start: 20240103, end: 20240103
  5. CARBOPLATIN [Suspect]
     Active Substance: CARBOPLATIN
     Indication: Prostate cancer
     Route: 042
     Dates: start: 20240103
  6. ALBUTEROL [Concomitant]
     Active Substance: ALBUTEROL
  7. DOFETILIDE [Concomitant]
     Active Substance: DOFETILIDE
     Dates: start: 20231120
  8. METOPROLOL SUCCINATE [Concomitant]
     Active Substance: METOPROLOL SUCCINATE
     Dates: start: 20231207
  9. HYDRALAZINE [Concomitant]
     Active Substance: HYDRALAZINE HYDROCHLORIDE
     Dates: start: 20230611
  10. ATORVASTATIN [Concomitant]
     Active Substance: ATORVASTATIN
     Dates: start: 20230626
  11. FUROSEMIDE [Concomitant]
     Active Substance: FUROSEMIDE
     Dates: start: 20210820
  12. ROPINIROLE [Concomitant]
     Active Substance: ROPINIROLE
     Dates: start: 20221005
  13. FENTANYL [Concomitant]
     Active Substance: FENTANYL\FENTANYL CITRATE
     Dates: start: 20231214
  14. OXYCODONE [Concomitant]
     Active Substance: OXYCODONE\OXYCODONE HYDROCHLORIDE
     Dates: start: 20180131
  15. TYLENOL [Concomitant]
     Active Substance: ACETAMINOPHEN
     Dates: start: 20190709
  16. OXYBUTYNIN [Concomitant]
     Active Substance: OXYBUTYNIN\OXYBUTYNIN CHLORIDE
     Dates: start: 20230824
  17. SILODOSIN [Concomitant]
     Active Substance: SILODOSIN
     Dates: start: 20190709
  18. NARCAN [Concomitant]
     Active Substance: NALOXONE HYDROCHLORIDE
     Dates: start: 20231025
  19. MICONAZOLE [Concomitant]
     Active Substance: MICONAZOLE
     Dates: start: 20230828
  20. OMEPRAZOLE [Concomitant]
     Active Substance: DONEPEZIL HYDROCHLORIDE\OMEPRAZOLE\OMEPRAZOLE MAGNESIUM
     Dates: start: 20200506
  21. SENNOSIDES [Concomitant]
     Active Substance: SENNOSIDES
     Dates: start: 20190709
  22. MELATONIN [Concomitant]
     Active Substance: MELATONIN
     Dates: start: 20231102
  23. NYSTATIN [Concomitant]
     Active Substance: NYSTATIN
     Dates: start: 20230712
  24. CALCIUM CARBONATE [Concomitant]
     Active Substance: CALCIUM CARBONATE
     Dates: start: 20190703
  25. CHOLECALCIFEROL [Concomitant]
     Active Substance: CHOLECALCIFEROL
     Dates: start: 20190709
  26. CEFEPIME [Concomitant]
     Active Substance: CEFEPIME HYDROCHLORIDE
     Dates: start: 20240307

REACTIONS (9)
  - Metastases to lung [Unknown]
  - Metastases to liver [Unknown]
  - Haematuria [Recovering/Resolving]
  - Anaemia [Recovered/Resolved]
  - Haemoglobin abnormal [Unknown]
  - Haematocrit decreased [Unknown]
  - Malignant neoplasm progression [Unknown]
  - Thrombosis [Unknown]
  - Dizziness [Unknown]

NARRATIVE: CASE EVENT DATE: 20240102
